FAERS Safety Report 25249768 (Version 1)
Quarter: 2025Q2

REPORT INFORMATION
  Report Type: Spontaneous
  Country: NL (occurrence: NL)
  Receive Date: 20250429
  Receipt Date: 20250429
  Transmission Date: 20250717
  Serious: Yes (Death, Hospitalization, Other)
  Sender: EPIC PHARM
  Company Number: NL-EPICPHARMA-NL-2025EPCLIT00493

PATIENT
  Age: 23 Year
  Sex: Male

DRUGS (3)
  1. OXYCODONE HYDROCHLORIDE [Suspect]
     Active Substance: OXYCODONE HYDROCHLORIDE
     Indication: Product used for unknown indication
     Route: 065
  2. COCAINE [Suspect]
     Active Substance: COCAINE
     Indication: Product used for unknown indication
     Route: 065
  3. QUETIAPINE [Suspect]
     Active Substance: QUETIAPINE
     Indication: Product used for unknown indication
     Route: 065

REACTIONS (22)
  - Toxic leukoencephalopathy [Fatal]
  - Depressed level of consciousness [Fatal]
  - Unresponsive to stimuli [Fatal]
  - Pupil fixed [Fatal]
  - Cerebellar infarction [Fatal]
  - Coma [Fatal]
  - Acute kidney injury [Fatal]
  - Hyperkalaemia [Fatal]
  - Rhabdomyolysis [Fatal]
  - Multiple organ dysfunction syndrome [Fatal]
  - Hepatic failure [Fatal]
  - Renal failure [Fatal]
  - Toxicity to various agents [Fatal]
  - Shock [Fatal]
  - Hyperlactacidaemia [Fatal]
  - Cyanosis [Fatal]
  - Hypertransaminasaemia [Fatal]
  - Respiration abnormal [Fatal]
  - Hypotension [Fatal]
  - Substance abuse [Fatal]
  - Hypoxia [Fatal]
  - Overdose [Unknown]
